FAERS Safety Report 5483235-9 (Version None)
Quarter: 2007Q4

REPORT INFORMATION
  Report Type: 
  Country: None (occurrence: None)
  Receive Date: 20071009
  Receipt Date: 20070927
  Transmission Date: 20080405
  Serious: Yes (Hospitalization)
  Sender: FDA-Public Use
  Company Number: 2007JP004098

PATIENT
  Age: 83 Year
  Sex: Male

DRUGS (10)
  1. VESICARE [Suspect]
     Dosage: ORAL
     Route: 048
  2. CANDESARTAN CILEXETIL [Concomitant]
  3. PICLONADINE (TICLOPIDINE HYDROCHLORIDE) [Concomitant]
  4. PROPAFENONE HCL [Concomitant]
  5. HIBON (RIBOFLAVIN TETRABUTYRATE) [Concomitant]
  6. SIGMART (NICORANDIL) [Concomitant]
  7. DILTIAZEM HYDROCHLORIDE [Concomitant]
  8. PURSENNID (SENNOSIDE A+B) [Concomitant]
  9. ISOSORBIDE DINITRATE [Concomitant]
  10. URIEF [Concomitant]

REACTIONS (1)
  - CARDIAC FAILURE [None]
